FAERS Safety Report 8530596-X (Version None)
Quarter: 2012Q3

REPORT INFORMATION
  Report Type: 
  Country: None (occurrence: None)
  Receive Date: 20120723
  Receipt Date: 20120717
  Transmission Date: 20120928
  Serious: Yes (Hospitalization)
  Sender: FDA-Public Use
  Company Number: US-B.I. PHARMACEUTICALS,INC./RIDGEFIELD-2012-BP-15858BP

PATIENT
  Sex: Female

DRUGS (13)
  1. AMPYRA [Suspect]
     Dosage: 10 MG
  2. BETASERON [Concomitant]
     Dates: start: 20120101, end: 20120501
  3. PAXIL [Concomitant]
  4. TRAZODONE HYDROCHLORIDE [Concomitant]
  5. ESTRADIOL [Concomitant]
  6. GILENYA [Suspect]
  7. AMPYRA [Suspect]
     Dosage: 20 MG
     Dates: start: 20111101
  8. CATAPRES [Suspect]
     Indication: HYPERTENSION
     Dates: start: 20111201
  9. COPAXONE [Suspect]
     Dates: start: 20120605
  10. XANAX [Concomitant]
  11. LISINOPRIL [Concomitant]
  12. ZITHROMAX [Suspect]
     Dates: start: 20111201
  13. OMEPRAZOLE [Concomitant]

REACTIONS (12)
  - CONFUSIONAL STATE [None]
  - OEDEMA [None]
  - DRUG HYPERSENSITIVITY [None]
  - DRUG EFFECT DECREASED [None]
  - INJECTION SITE PAIN [None]
  - INAPPROPRIATE SCHEDULE OF DRUG ADMINISTRATION [None]
  - ERYTHEMA [None]
  - ENCEPHALOPATHY [None]
  - HYPERSENSITIVITY [None]
  - HYPERTENSION [None]
  - CONVULSION [None]
  - HEADACHE [None]
